FAERS Safety Report 17293470 (Version 1)
Quarter: 2020Q1

REPORT INFORMATION
  Report Type: Spontaneous
  Country: US (occurrence: US)
  Receive Date: 20200121
  Receipt Date: 20200121
  Transmission Date: 20200409
  Serious: Yes (Life-Threatening, Hospitalization)
  Sender: FDA-Public Use
  Company Number: US-ADAREPHARM-2020-US-000002

PATIENT
  Age: 40 Year
  Sex: Female

DRUGS (3)
  1. METHAMPHETAMINE [Suspect]
     Active Substance: METHAMPHETAMINE
  2. PROPRANOLOL [Suspect]
     Active Substance: PROPRANOLOL HYDROCHLORIDE
     Indication: HYPERTHYROIDISM
  3. METHIMAZOLE. [Suspect]
     Active Substance: METHIMAZOLE
     Route: 048

REACTIONS (2)
  - Therapeutic product ineffective for unapproved indication [Not Recovered/Not Resolved]
  - Cardiac failure acute [Not Recovered/Not Resolved]
